FAERS Safety Report 6154501-9 (Version None)
Quarter: 2009Q2

REPORT INFORMATION
  Report Type: 
  Country: None (occurrence: None)
  Receive Date: 20090414
  Receipt Date: 20090410
  Transmission Date: 20091009
  Serious: Yes (Other)
  Sender: FDA-Public Use
  Company Number: US-PFIZER INC-2009178338

PATIENT
  Sex: Female
  Weight: 69.853 kg

DRUGS (9)
  1. TIKOSYN [Suspect]
     Indication: ATRIAL FIBRILLATION
     Dosage: 250 UG, 2X/DAY
     Dates: start: 20090201
  2. LOTREL [Concomitant]
  3. COREG [Concomitant]
     Dosage: UNK
  4. DIGOXIN [Concomitant]
     Dosage: UNK
  5. WARFARIN SODIUM [Concomitant]
     Dosage: UNK
  6. SUCRALFATE [Concomitant]
     Dosage: UNK
  7. PULMICORT-100 [Concomitant]
     Dosage: UNK
  8. SPIRIVA [Concomitant]
     Dosage: UNK
  9. VITAMINS [Concomitant]
     Dosage: UNK

REACTIONS (5)
  - ABDOMINAL DISCOMFORT [None]
  - ANOREXIA [None]
  - NAUSEA [None]
  - RETINAL HAEMORRHAGE [None]
  - WEIGHT DECREASED [None]
